FAERS Safety Report 8396321-0 (Version None)
Quarter: 2012Q2

REPORT INFORMATION
  Report Type: 
  Country: None (occurrence: None)
  Receive Date: 20120530
  Receipt Date: 20120518
  Transmission Date: 20120825
  Serious: Yes (Hospitalization, Other)
  Sender: FDA-Public Use
  Company Number: US-ELI_LILLY_AND_COMPANY-US201007005546

PATIENT
  Sex: Female

DRUGS (3)
  1. FORTEO [Suspect]
     Indication: OSTEOPOROSIS
     Dosage: 20 UG, DAILY (1/D)
  2. ANTIBIOTICS [Concomitant]
  3. FORTEO [Suspect]

REACTIONS (9)
  - UPPER LIMB FRACTURE [None]
  - NAUSEA [None]
  - DYSPHAGIA [None]
  - HIP ARTHROPLASTY [None]
  - RENAL HAEMORRHAGE [None]
  - MALAISE [None]
  - FALL [None]
  - ASTHENIA [None]
  - CONFUSIONAL STATE [None]
